FAERS Safety Report 13836949 (Version 1)
Quarter: 2017Q3

REPORT INFORMATION
  Report Type: Spontaneous
  Country: US (occurrence: US)
  Receive Date: 20170804
  Receipt Date: 20170804
  Transmission Date: 20171127
  Serious: No
  Sender: FDA-Public Use
  Company Number: US-ROCHE-1210867

PATIENT
  Age: 87 Year
  Sex: Female

DRUGS (1)
  1. BONVIVA [Suspect]
     Active Substance: IBANDRONATE SODIUM
     Indication: OSTEOPOROSIS
     Route: 048

REACTIONS (5)
  - Pain in jaw [Unknown]
  - Nausea [Unknown]
  - Flushing [Unknown]
  - Jaw disorder [Unknown]
  - Feeling hot [Unknown]
